FAERS Safety Report 17629436 (Version 1)
Quarter: 2020Q2

REPORT INFORMATION
  Report Type: Spontaneous
  Country: FR (occurrence: FR)
  Receive Date: 20200406
  Receipt Date: 20200406
  Transmission Date: 20200713
  Serious: Yes (Hospitalization)
  Sender: FDA-Public Use
  Company Number: FR-TEVA-2020-FR-1218648

PATIENT
  Age: 69 Year
  Sex: Male
  Weight: 106 kg

DRUGS (15)
  1. TRANSIPEG [Concomitant]
  2. NOVATREX (METHOTREXATE) [Concomitant]
     Active Substance: METHOTREXATE SODIUM
  3. ISOPTINE [Concomitant]
     Active Substance: VERAPAMIL HYDROCHLORIDE
  4. AMLODIPINE [Suspect]
     Active Substance: AMLODIPINE BESYLATE
     Indication: HYPERTENSION
     Dosage: 5MG
     Route: 048
     Dates: start: 20200204, end: 20200309
  5. AERIUS (DESLORATADINE) [Suspect]
     Active Substance: DESLORATADINE
     Indication: ANTIALLERGIC THERAPY
     Dosage: 5MG
     Route: 048
     Dates: start: 20200229, end: 20200304
  6. NOVOPULMON NOVOLIZER 200 MICROGRAMMES/DOSE, POUDRE POUR INHALATION [Suspect]
     Active Substance: BUDESONIDE
     Indication: ASTHMA
     Route: 055
     Dates: start: 20200229, end: 20200304
  7. ZITHROMAX [Suspect]
     Active Substance: AZITHROMYCIN DIHYDRATE
     Indication: INFECTION
     Route: 048
     Dates: start: 20200229, end: 20200304
  8. GLICLAZIDE [Concomitant]
     Active Substance: GLICLAZIDE
  9. RHINOMAXIL 100 MICROGRAMMES/DOSE, SUSPENSION POUR PULVERISATION NASALE [Suspect]
     Active Substance: BECLOMETHASONE DIPROPIONATE
     Indication: RHINITIS ALLERGIC
     Route: 045
     Dates: start: 20200229, end: 20200304
  10. LANTUS [Concomitant]
     Active Substance: INSULIN GLARGINE
  11. SPECIAFOLDINE 5 MG, COMPRIME [Concomitant]
     Active Substance: FOLIC ACID
  12. KARDEGIC [Concomitant]
     Active Substance: ASPIRIN DL-LYSINE
  13. EUCREAS 50 MG/1000 MG, COMPRIME PELLICULE [Concomitant]
     Active Substance: METFORMIN HYDROCHLORIDE\VILDAGLIPTIN
  14. INEGY 10 MG/40 MG, COMPRIME [Concomitant]
     Active Substance: EZETIMIBE\SIMVASTATIN
  15. ESOMEPRAZOLE. [Suspect]
     Active Substance: ESOMEPRAZOLE MAGNESIUM
     Indication: GASTROOESOPHAGEAL REFLUX PROPHYLAXIS
     Route: 048
     Dates: start: 20200229, end: 20200304

REACTIONS (2)
  - Weight increased [Recovered/Resolved]
  - Generalised oedema [Recovered/Resolved]

NARRATIVE: CASE EVENT DATE: 20200301
